FAERS Safety Report 17719322 (Version 1)
Quarter: 2020Q2

REPORT INFORMATION
  Report Type: Spontaneous
  Country: FR (occurrence: FR)
  Receive Date: 20200428
  Receipt Date: 20200428
  Transmission Date: 20200714
  Serious: Yes (Other)
  Sender: FDA-Public Use
  Company Number: FR-MYLANLABS-2020M1036312

PATIENT
  Age: 55 Year
  Sex: Male
  Weight: 86 kg

DRUGS (2)
  1. METHOTREXATE MYLAN [Suspect]
     Active Substance: METHOTREXATE SODIUM
     Dosage: UNK FROM 17 APRIL TO 20 APRIL (5.94 DAILY).)
  2. METHOTREXATE MYLAN [Suspect]
     Active Substance: METHOTREXATE SODIUM
     Indication: LYMPHADENOPATHY MEDIASTINAL
     Dosage: UNK (4 APRIL TO 9 APRIL (5.94 DAILY)

REACTIONS (3)
  - Hypermetabolism [Unknown]
  - Drug level decreased [Unknown]
  - Symptom recurrence [Unknown]

NARRATIVE: CASE EVENT DATE: 20200406
